FAERS Safety Report 9883705 (Version 2)
Quarter: 2014Q1

REPORT INFORMATION
  Report Type: Spontaneous
  Country: US (occurrence: US)
  Receive Date: 20140210
  Receipt Date: 20140225
  Transmission Date: 20141002
  Serious: No
  Sender: FDA-Public Use
  Company Number: US-009507513-1402USA000289

PATIENT
  Age: 45 Year
  Sex: Female

DRUGS (6)
  1. PEGINTRON [Suspect]
     Indication: HEPATITIS C
     Dosage: 0.5 ML, QW, REDIPEN
     Route: 058
     Dates: start: 20140127
  2. REBETOL [Suspect]
     Indication: HEPATITIS C
     Dosage: 2 IN A.M. AND 3 IN THE AFTERNOON
     Route: 048
     Dates: start: 20140127
  3. LEVOTHYROXINE SODIUM [Concomitant]
     Indication: THYROID DISORDER
     Dosage: 200 MICROGRAM, QD
     Route: 048
  4. BUPROPION HYDROCHLORIDE [Concomitant]
     Dosage: 150 MG, TID
  5. SEROQUEL XR [Concomitant]
     Dosage: 300 MG,1 AT BED TIME
  6. SOVALDI [Concomitant]
     Dosage: 400 MG, QD

REACTIONS (9)
  - Chest discomfort [Unknown]
  - Inappropriate schedule of drug administration [Unknown]
  - Pain [Unknown]
  - Oropharyngeal pain [Unknown]
  - Tremor [Unknown]
  - Paraesthesia [Unknown]
  - Cough [Unknown]
  - Dysphonia [Unknown]
  - Nasopharyngitis [Unknown]
